FAERS Safety Report 14877458 (Version 5)
Quarter: 2018Q3

REPORT INFORMATION
  Report Type: Spontaneous
  Country: DE (occurrence: DE)
  Receive Date: 20180510
  Receipt Date: 20180822
  Transmission Date: 20181010
  Serious: Yes (Hospitalization)
  Sender: FDA-Public Use
  Company Number: DE-ROCHE-2118741

PATIENT
  Age: 25 Year
  Sex: Female

DRUGS (15)
  1. TACROLIMUS. [Suspect]
     Active Substance: TACROLIMUS
     Indication: IMMUNOSUPPRESSANT DRUG THERAPY
     Dosage: INITIATED ON DAY +5 SWITCHED TO SIROLIMUS ON DAY +8
     Route: 065
  2. MICAFUNGIN [Concomitant]
     Active Substance: MICAFUNGIN
     Indication: ANTIFUNGAL PROPHYLAXIS
     Route: 065
  3. PREDNISOLONE. [Suspect]
     Active Substance: PREDNISOLONE
     Indication: IMMUNOSUPPRESSANT DRUG THERAPY
     Route: 042
  4. VALACICLOVIR [Concomitant]
     Active Substance: VALACYCLOVIR HYDROCHLORIDE
     Indication: ANTIVIRAL PROPHYLAXIS
     Route: 065
  5. PENTAMIDINE [Concomitant]
     Active Substance: PENTAMIDINE
     Indication: ANTIFUNGAL PROPHYLAXIS
     Route: 055
  6. CYCLOPHOSPHAMIDE. [Suspect]
     Active Substance: CYCLOPHOSPHAMIDE
     Indication: IMMUNOSUPPRESSANT DRUG THERAPY
     Dosage: ON DAYS +3 AND +4
     Route: 065
  7. TACROLIMUS. [Suspect]
     Active Substance: TACROLIMUS
     Indication: NON-HODGKIN^S LYMPHOMA
  8. MYCOPHENOLATE MOFETIL. [Suspect]
     Active Substance: MYCOPHENOLATE MOFETIL
     Indication: IMMUNOSUPPRESSANT DRUG THERAPY
     Route: 048
  9. CYTARABINE. [Suspect]
     Active Substance: CYTARABINE
     Indication: PRODUCT USED FOR UNKNOWN INDICATION
     Dosage: EACH FOR 4 DAYS
     Route: 065
  10. CYCLOPHOSPHAMIDE. [Suspect]
     Active Substance: CYCLOPHOSPHAMIDE
     Indication: BONE MARROW CONDITIONING REGIMEN
     Dosage: DAY 3 AND 4
     Route: 065
  11. BUDESONIDE. [Suspect]
     Active Substance: BUDESONIDE
     Indication: IMMUNOSUPPRESSANT DRUG THERAPY
     Route: 048
  12. AMSACRINE [Suspect]
     Active Substance: AMSACRINE
     Indication: PRODUCT USED FOR UNKNOWN INDICATION
     Route: 065
  13. SIROLIMUS. [Suspect]
     Active Substance: SIROLIMUS
     Indication: PRODUCT USED FOR UNKNOWN INDICATION
     Dosage: ADMINISTERED ON DAY +8
     Route: 065
  14. PENTAMIDINE [Concomitant]
     Active Substance: PENTAMIDINE
     Indication: INFECTION PROPHYLAXIS
  15. FLUDARABINE [Suspect]
     Active Substance: FLUDARABINE PHOSPHATE
     Indication: BONE MARROW CONDITIONING REGIMEN
     Route: 065

REACTIONS (6)
  - Enterocolitis infectious [Recovering/Resolving]
  - Weight decreased [Recovering/Resolving]
  - Hypoalbuminaemia [Recovering/Resolving]
  - Peripheral swelling [Unknown]
  - Malnutrition [Recovering/Resolving]
  - Palmar-plantar erythrodysaesthesia syndrome [Unknown]
